FAERS Safety Report 18517530 (Version 1)
Quarter: 2020Q4

REPORT INFORMATION
  Report Type: Spontaneous
  Country: IN (occurrence: IN)
  Receive Date: 20201118
  Receipt Date: 20201118
  Transmission Date: 20210114
  Serious: Yes (Other)
  Sender: FDA-Public Use
  Company Number: IN-PFIZER INC-2020449801

PATIENT
  Age: 52 Year
  Sex: Male

DRUGS (2)
  1. SUNITINIB MALATE. [Suspect]
     Active Substance: SUNITINIB MALATE
     Dosage: 50MG, CYCLIC (OD, 4 WEEK ON AND 2 WEEK OFF)
  2. SUNITINIB MALATE. [Suspect]
     Active Substance: SUNITINIB MALATE
     Dosage: 50MG, CYCLIC (OD, 2 WEEKS ON AND 1 WEEK OFF)

REACTIONS (1)
  - Psychotic disorder [Unknown]
